FAERS Safety Report 26025212 (Version 1)
Quarter: 2025Q4

REPORT INFORMATION
  Report Type: Spontaneous
  Country: EU (occurrence: EU)
  Receive Date: 20251111
  Receipt Date: 20251111
  Transmission Date: 20260117
  Serious: Yes (Death, Other)
  Sender: SANOFI AVENTIS
  Company Number: EU-SA-2025SA332247

PATIENT
  Age: 49 Year
  Sex: Male

DRUGS (5)
  1. CABLIVI [Suspect]
     Active Substance: CAPLACIZUMAB-YHDP
     Indication: Thrombotic thrombocytopenic purpura
     Dosage: 1 DF, QD
     Dates: start: 202504, end: 202505
  2. CABLIVI [Suspect]
     Active Substance: CAPLACIZUMAB-YHDP
     Indication: Thrombotic thrombocytopenic purpura
     Dosage: 1 DF, QD
     Dates: start: 202504, end: 202505
  3. CABLIVI [Suspect]
     Active Substance: CAPLACIZUMAB-YHDP
     Indication: Thrombotic thrombocytopenic purpura
     Dosage: 1 DF, QD
     Dates: start: 202504, end: 202505
  4. CABLIVI [Suspect]
     Active Substance: CAPLACIZUMAB-YHDP
     Indication: Thrombotic thrombocytopenic purpura
     Dosage: 1 DF, QD
     Dates: start: 202504, end: 202505
  5. RITUXIMAB [Concomitant]
     Active Substance: RITUXIMAB

REACTIONS (20)
  - Cardio-respiratory arrest [Fatal]
  - Respiratory failure [Fatal]
  - Hypercapnia [Fatal]
  - Pneumonia aspiration [Fatal]
  - Acute coronary syndrome [Unknown]
  - Multisystem inflammatory syndrome [Unknown]
  - Condition aggravated [Unknown]
  - Renal impairment [Unknown]
  - Pericardial effusion [Unknown]
  - Blood lactate dehydrogenase increased [Unknown]
  - Troponin increased [Unknown]
  - Weaning failure [Unknown]
  - Cough [Unknown]
  - Disorientation [Unknown]
  - Lung consolidation [Unknown]
  - Lung opacity [Unknown]
  - Pleural effusion [Unknown]
  - Acinetobacter test positive [Unknown]
  - Pyrexia [Unknown]
  - Epistaxis [Unknown]

NARRATIVE: CASE EVENT DATE: 20250401
